FAERS Safety Report 14291320 (Version 1)
Quarter: 2017Q4

REPORT INFORMATION
  Report Type: Spontaneous
  Country: DE (occurrence: DE)
  Receive Date: 20171215
  Receipt Date: 20171215
  Transmission Date: 20180321
  Serious: Yes (Hospitalization, Other)
  Sender: FDA-Public Use
  Company Number: DE-WEST-WARD PHARMACEUTICALS CORP.-DE-H14001-17-04919

PATIENT
  Age: 66 Year
  Sex: Male

DRUGS (9)
  1. PHENYTOIN. [Interacting]
     Active Substance: PHENYTOIN
     Indication: STATUS EPILEPTICUS
     Route: 048
  2. LEVETIRACETAM ORAL [Interacting]
     Active Substance: LEVETIRACETAM
     Indication: STATUS EPILEPTICUS
     Route: 048
  3. LEVETIRACETAM ORAL [Interacting]
     Active Substance: LEVETIRACETAM
     Indication: EPILEPSY
  4. SODIUM VALPROATE [Interacting]
     Active Substance: VALPROATE SODIUM
     Indication: STATUS EPILEPTICUS
     Route: 048
  5. LEVETIRACETAM IV [Suspect]
     Active Substance: LEVETIRACETAM
     Indication: STATUS EPILEPTICUS
     Route: 042
  6. LEVETIRACETAM IV [Interacting]
     Active Substance: LEVETIRACETAM
     Indication: EPILEPSY
  7. PHENYTOIN. [Interacting]
     Active Substance: PHENYTOIN
     Indication: EPILEPSY
     Route: 042
  8. LORAZEPAM. [Concomitant]
     Active Substance: LORAZEPAM
     Indication: PRODUCT USED FOR UNKNOWN INDICATION
     Route: 065
  9. SODIUM VALPROATE [Interacting]
     Active Substance: VALPROATE SODIUM
     Indication: EPILEPSY
     Route: 042

REACTIONS (4)
  - Encephalopathy [Unknown]
  - Off label use [Unknown]
  - Fall [Unknown]
  - Drug interaction [Unknown]
